FAERS Safety Report 4272210-8 (Version None)
Quarter: 2004Q1

REPORT INFORMATION
  Report Type: 
  Country: None (occurrence: None)
  Receive Date: 20040115
  Receipt Date: 20040107
  Transmission Date: 20041129
  Serious: Yes (Hospitalization)
  Sender: FDA-Public Use
  Company Number: US-BRISTOL-MYERS SQUIBB COMPANY-12471348

PATIENT
  Age: 42 Year
  Sex: Male

DRUGS (4)
  1. PACLITAXEL [Suspect]
     Indication: OESOPHAGEAL CARCINOMA
     Route: 042
     Dates: start: 20030730, end: 20030822
  2. CARBOPLATIN [Suspect]
     Indication: OESOPHAGEAL CARCINOMA
     Route: 042
     Dates: start: 20030730, end: 20030822
  3. FLUOROURACIL [Suspect]
     Indication: OESOPHAGEAL CARCINOMA
     Route: 042
     Dates: start: 20030730, end: 20030903
  4. RADIOTHERAPY [Suspect]
     Indication: OESOPHAGEAL CARCINOMA
     Dates: start: 20030730, end: 20030905

REACTIONS (8)
  - CHILLS [None]
  - COUGH [None]
  - FAECAL OCCULT BLOOD POSITIVE [None]
  - HYPOTENSION [None]
  - IMPLANT SITE INFECTION [None]
  - PANCYTOPENIA [None]
  - PYREXIA [None]
  - STAPHYLOCOCCAL BACTERAEMIA [None]
